FAERS Safety Report 4328196-0 (Version None)
Quarter: 2004Q1

REPORT INFORMATION
  Report Type: 
  Country: None (occurrence: None)
  Receive Date: 20040331
  Receipt Date: 20040324
  Transmission Date: 20041129
  Serious: Yes (Hospitalization)
  Sender: FDA-Public Use
  Company Number: FR-GLAXOSMITHKLINE-B0327835A

PATIENT
  Age: 63 Year
  Sex: Male

DRUGS (2)
  1. FORTUM [Suspect]
     Indication: NOSOCOMIAL INFECTION
     Dosage: 6G PER DAY
     Route: 042
     Dates: start: 20040101
  2. BACTRIM DS [Concomitant]
     Indication: NOSOCOMIAL INFECTION
     Route: 048
     Dates: start: 20040101

REACTIONS (5)
  - ARTHRALGIA [None]
  - C-REACTIVE PROTEIN INCREASED [None]
  - CHEST PAIN [None]
  - PAIN IN JAW [None]
  - PYREXIA [None]
